FAERS Safety Report 16976115 (Version 1)
Quarter: 2019Q4

REPORT INFORMATION
  Report Type: Report from Study
  Country: GB (occurrence: GB)
  Receive Date: 20191030
  Receipt Date: 20191030
  Transmission Date: 20200122
  Serious: Yes (Other)
  Sender: FDA-Public Use
  Company Number: NVSC2019GB014985

PATIENT
  Sex: Female

DRUGS (1)
  1. HYRIMOZ [Suspect]
     Active Substance: ADALIMUMAB-ADAZ
     Indication: HIDRADENITIS
     Dosage: 40 MG, QW
     Route: 058

REACTIONS (6)
  - Condition aggravated [Unknown]
  - Pain [Unknown]
  - Hidradenitis [Unknown]
  - Injection site pain [Unknown]
  - Cyst [Unknown]
  - Haemorrhage [Unknown]
